FAERS Safety Report 9790368 (Version 1)
Quarter: 2013Q4

REPORT INFORMATION
  Report Type: Spontaneous
  Country: FR (occurrence: FR)
  Receive Date: 20131231
  Receipt Date: 20131231
  Transmission Date: 20140711
  Serious: Yes (Other)
  Sender: FDA-Public Use
  Company Number: FR-ASTRAZENECA-2013SE93192

PATIENT
  Age: 575 Month
  Sex: Male

DRUGS (5)
  1. CAPRELSA [Suspect]
     Indication: MEDULLARY THYROID CANCER
     Route: 048
     Dates: start: 201306
  2. UVEDOSE [Concomitant]
  3. LEVOTHYROX [Concomitant]
  4. IMODIUM [Concomitant]
  5. TOPALGIC [Concomitant]

REACTIONS (1)
  - Grand mal convulsion [Recovered/Resolved]
